FAERS Safety Report 6111109-9 (Version None)
Quarter: 2009Q1

REPORT INFORMATION
  Report Type: 
  Country: None (occurrence: None)
  Receive Date: 20090311
  Receipt Date: 20080612
  Transmission Date: 20090719
  Serious: No
  Sender: FDA-Public Use
  Company Number: US-KINGPHARMUSA00001-K200800689

PATIENT
  Sex: Female

DRUGS (2)
  1. ALTACE [Suspect]
     Dosage: 2.5 MG, UNK
     Dates: start: 20080603, end: 20080607
  2. ALTACE [Suspect]
     Dosage: 5 MG, UNK
     Dates: start: 20080608

REACTIONS (1)
  - INSOMNIA [None]
